FAERS Safety Report 17242354 (Version 1)
Quarter: 2020Q1

REPORT INFORMATION
  Report Type: Spontaneous
  Country: US (occurrence: US)
  Receive Date: 20200106
  Receipt Date: 20200106
  Transmission Date: 20200409
  Serious: Yes (Disabling)
  Sender: FDA-Public Use
  Company Number: None

PATIENT
  Age: 83 Year
  Sex: Male
  Weight: 68.4 kg

DRUGS (17)
  1. RESVERATROL [Concomitant]
     Active Substance: DIETARY SUPPLEMENT\RESVERATROL
  2. COREG [Concomitant]
     Active Substance: CARVEDILOL
  3. MAGNESIUM CITRATE. [Concomitant]
     Active Substance: MAGNESIUM CITRATE
  4. PROBIOTIC [Concomitant]
     Active Substance: PROBIOTICS NOS
  5. TAURINE [Concomitant]
     Active Substance: TAURINE
  6. FUROSEMIDE. [Concomitant]
     Active Substance: FUROSEMIDE
  7. VIT D [Concomitant]
     Active Substance: VITAMIN D NOS
  8. NATTOKINASE [Concomitant]
     Active Substance: NATTOKINASE
  9. VITAMIN C [Concomitant]
     Active Substance: ASCORBIC ACID
  10. ELIQUIS [Suspect]
     Active Substance: APIXABAN
     Indication: THROMBOSIS
     Dosage: ?          QUANTITY:1 TABLET(S);?
     Route: 048
  11. DIGOXIN. [Concomitant]
     Active Substance: DIGOXIN
  12. NETTLE [Concomitant]
     Active Substance: URTICA DIOICA POLLEN
  13. UBIQUINOL [Concomitant]
     Active Substance: UBIQUINOL
  14. TOCOTRIENOLS [Concomitant]
  15. ZINC. [Concomitant]
     Active Substance: ZINC
  16. POTASSIUM CITRATE. [Concomitant]
     Active Substance: POTASSIUM CITRATE
  17. FOLATE [Concomitant]
     Active Substance: FOLATE SODIUM

REACTIONS (3)
  - Urinary retention [None]
  - Weight increased [None]
  - Pruritus [None]

NARRATIVE: CASE EVENT DATE: 20200105
